FAERS Safety Report 24332325 (Version 3)
Quarter: 2024Q3

REPORT INFORMATION
  Report Type: Spontaneous
  Country: US (occurrence: US)
  Receive Date: 20240918
  Receipt Date: 20240930
  Transmission Date: 20241017
  Serious: No
  Sender: ROCHE
  Company Number: US-ROCHE-10000077479

PATIENT
  Sex: Female
  Weight: 71.21 kg

DRUGS (16)
  1. VABYSMO [Suspect]
     Active Substance: FARICIMAB-SVOA
     Indication: Neovascular age-related macular degeneration
     Route: 031
     Dates: start: 20240705
  2. LEVOTHYROXINE [Concomitant]
     Active Substance: LEVOTHYROXINE\LEVOTHYROXINE SODIUM
     Indication: Hypothyroidism
     Route: 048
  3. DULOXETINE [Concomitant]
     Active Substance: DULOXETINE
     Indication: Depression
     Route: 048
  4. TRELEGY ELLIPTA [Concomitant]
     Active Substance: FLUTICASONE FUROATE\UMECLIDINIUM BROMIDE\VILANTEROL TRIFENATATE
     Indication: Chronic obstructive pulmonary disease
     Dosage: 2 PUFFS ONCE DAILY
     Route: 055
  5. FAMOTIDINE [Concomitant]
     Active Substance: FAMOTIDINE
     Route: 048
  6. MINERALS\VITAMINS [Concomitant]
     Active Substance: MINERALS\VITAMINS
  7. SYSTANE (HYPROMELLOSE 2910 (4000 MPA.S)) [Concomitant]
     Active Substance: HYPROMELLOSE 2910 (4000 MPA.S)
     Indication: Dry eye
     Route: 047
  8. METHYLPREDNISOLONE [Concomitant]
     Active Substance: METHYLPREDNISOLONE
     Route: 048
  9. CIPROFLOXACIN [Concomitant]
     Active Substance: CIPROFLOXACIN
     Route: 047
  10. CIPROFLOXACIN [Concomitant]
     Active Substance: CIPROFLOXACIN
     Dosage: 1 TABLET TWICE PER DAY FOR 14 DAYS
     Route: 048
  11. CIPROFLOXACIN [Concomitant]
     Active Substance: CIPROFLOXACIN
     Route: 047
  12. PREDNISOLONE [Concomitant]
     Active Substance: PREDNISOLONE
     Route: 047
  13. PREDNISOLONE [Concomitant]
     Active Substance: PREDNISOLONE
     Route: 047
  14. BUSPIRONE [Concomitant]
     Active Substance: BUSPIRONE HYDROCHLORIDE
     Indication: Anxiety
     Route: 048
  15. ALBUTEROL SULFATE [Concomitant]
     Active Substance: ALBUTEROL SULFATE
     Indication: Chronic obstructive pulmonary disease
     Route: 055
  16. BUDESONIDE\FORMOTEROL FUMARATE [Concomitant]
     Active Substance: BUDESONIDE\FORMOTEROL FUMARATE
     Indication: Chronic obstructive pulmonary disease
     Route: 055

REACTIONS (5)
  - Vitreous floaters [Not Recovered/Not Resolved]
  - Off label use [Unknown]
  - Vision blurred [Not Recovered/Not Resolved]
  - Eye pain [Recovered/Resolved]
  - Vitritis [Unknown]

NARRATIVE: CASE EVENT DATE: 20240705
